FAERS Safety Report 7743181-4 (Version None)
Quarter: 2011Q3

REPORT INFORMATION
  Report Type: 
  Country: None (occurrence: None)
  Receive Date: 20110912
  Receipt Date: 20110902
  Transmission Date: 20111222
  Serious: Yes (Hospitalization)
  Sender: FDA-Public Use
  Company Number: AU-NAPPMUNDI-USA-2008-0035759

PATIENT
  Sex: Male
  Weight: 60 kg

DRUGS (3)
  1. ACETAMINOPHEN [Concomitant]
     Dosage: UNK, PRN
  2. BUPRENORPHINE [Suspect]
     Dosage: 5 MCG, Q1H
     Route: 062
     Dates: start: 20080825, end: 20080902
  3. BUPRENORPHINE [Suspect]
     Indication: POST HERPETIC NEURALGIA
     Dosage: 10 MCG, Q1H
     Route: 062
     Dates: start: 20080929, end: 20081105

REACTIONS (1)
  - RESPIRATORY TRACT INFECTION [None]
